FAERS Safety Report 7987772-4 (Version None)
Quarter: 2011Q4

REPORT INFORMATION
  Report Type: 
  Country: None (occurrence: None)
  Receive Date: 20111216
  Receipt Date: 20101108
  Transmission Date: 20120403
  Serious: No
  Sender: FDA-Public Use
  Company Number: US-BRISTOL-MYERS SQUIBB COMPANY-15372592

PATIENT
  Sex: Female

DRUGS (5)
  1. AMBIEN [Concomitant]
  2. ATIVAN [Concomitant]
  3. CELEXA [Concomitant]
  4. WELLBUTRIN [Concomitant]
  5. ABILIFY [Suspect]
     Dates: start: 20090201

REACTIONS (2)
  - TARDIVE DYSKINESIA [None]
  - DYSTONIA [None]
